FAERS Safety Report 14694610 (Version 3)
Quarter: 2018Q2

REPORT INFORMATION
  Report Type: Spontaneous
  Country: CA (occurrence: CA)
  Receive Date: 20180329
  Receipt Date: 20180510
  Transmission Date: 20180711
  Serious: Yes (Hospitalization, Other)
  Sender: FDA-Public Use
  Company Number: CA-CELLTRION INC.-2018CA018880

PATIENT

DRUGS (7)
  1. REACTINE                           /00884302/ [Concomitant]
     Active Substance: CETIRIZINE HYDROCHLORIDE
     Dosage: UNK
  2. MELOXICAM. [Concomitant]
     Active Substance: MELOXICAM
  3. INFLECTRA [Suspect]
     Active Substance: INFLIXIMAB-DYYB
     Dosage: 350 MG, CYCLIC, EVERY 0,2,6 WEEKS, THEN EVERY 8 WEEKS
     Route: 042
     Dates: start: 20180501, end: 20180501
  4. INFLECTRA [Suspect]
     Active Substance: INFLIXIMAB-DYYB
     Indication: ANKYLOSING SPONDYLITIS
     Dosage: 350 MG, CYCLIC, EVERY 0,2,6 WEEKS, THEN EVERY 8 WEEKS
     Route: 042
     Dates: start: 20180319
  5. INFLECTRA [Suspect]
     Active Substance: INFLIXIMAB-DYYB
     Dosage: 350 MG, CYCLIC, EVERY 0,2,6 WEEKS, THEN EVERY 8 WEEKS
     Route: 042
     Dates: start: 20180402
  6. NAPROSYN [Concomitant]
     Active Substance: NAPROXEN
     Dosage: UNK
  7. ALESSE 28 [Concomitant]
     Active Substance: ETHINYL ESTRADIOL\LEVONORGESTREL
     Dosage: UNK

REACTIONS (27)
  - Shock [Unknown]
  - Hyperhidrosis [Unknown]
  - Dysphagia [Unknown]
  - Tonsillitis bacterial [Recovered/Resolved]
  - Arthralgia [Unknown]
  - Fatigue [Unknown]
  - Acne [Unknown]
  - Blood pressure decreased [Recovering/Resolving]
  - Body temperature decreased [Unknown]
  - Pallor [Recovered/Resolved]
  - Oropharyngeal pain [Unknown]
  - Tonsillar disorder [Recovering/Resolving]
  - Musculoskeletal stiffness [Unknown]
  - Paraesthesia [Unknown]
  - Erythema [Recovered/Resolved]
  - Urticaria [Unknown]
  - Malaise [Unknown]
  - Vomiting projectile [Unknown]
  - Cough [Unknown]
  - Hypoaesthesia [Unknown]
  - Pyrexia [Unknown]
  - Heart rate decreased [Recovered/Resolved]
  - Somnolence [Unknown]
  - Infusion site extravasation [Unknown]
  - Hot flush [Unknown]
  - Nausea [Recovered/Resolved]
  - Nasopharyngitis [Unknown]

NARRATIVE: CASE EVENT DATE: 20180319
